FAERS Safety Report 23051985 (Version 1)
Quarter: 2023Q4

REPORT INFORMATION
  Report Type: Spontaneous
  Country: US (occurrence: US)
  Receive Date: 20231010
  Receipt Date: 20231010
  Transmission Date: 20240110
  Serious: No
  Sender: FDA-Public Use
  Company Number: US-SA-SAC20231005001474

PATIENT
  Age: 84 Year
  Sex: Female

DRUGS (3)
  1. DUPIXENT [Suspect]
     Active Substance: DUPILUMAB
     Indication: Neurodermatitis
     Dosage: 2 DF QM
     Route: 001
     Dates: start: 20220322, end: 202210
  2. DUPIXENT [Suspect]
     Active Substance: DUPILUMAB
     Indication: Pruritus
     Dosage: 1 DF QM
     Route: 001
     Dates: start: 202210
  3. DUPIXENT [Suspect]
     Active Substance: DUPILUMAB
     Indication: Ulcer

REACTIONS (8)
  - Nausea [Recovering/Resolving]
  - Joint stiffness [Recovering/Resolving]
  - Gait disturbance [Recovering/Resolving]
  - Ocular discomfort [Recovering/Resolving]
  - Dizziness [Recovering/Resolving]
  - Drug ineffective for unapproved indication [Unknown]
  - Product use in unapproved indication [Unknown]
  - Incorrect route of product administration [Unknown]

NARRATIVE: CASE EVENT DATE: 20220101
